FAERS Safety Report 20741741 (Version 1)
Quarter: 2022Q2

REPORT INFORMATION
  Report Type: Report from Study
  Country: US (occurrence: US)
  Receive Date: 20220423
  Receipt Date: 20220423
  Transmission Date: 20220720
  Serious: Yes (Hospitalization)
  Sender: FDA-Public Use
  Company Number: US-ABBVIE-22K-163-4365878-00

PATIENT
  Age: 77 Year
  Sex: Male

DRUGS (2)
  1. IMBRUVICA [Interacting]
     Active Substance: IBRUTINIB
     Indication: Mantle cell lymphoma
     Route: 048
     Dates: start: 20201112, end: 20210906
  2. IBRANCE [Interacting]
     Active Substance: PALBOCICLIB
     Indication: Mantle cell lymphoma
     Route: 048
     Dates: start: 20201112, end: 20210906

REACTIONS (1)
  - Drug interaction [Unknown]
